FAERS Safety Report 24453129 (Version 2)
Quarter: 2024Q4

REPORT INFORMATION
  Report Type: Report from Study
  Country: CA (occurrence: CA)
  Receive Date: 20241017
  Receipt Date: 20241018
  Transmission Date: 20250115
  Serious: No
  Sender: ROCHE
  Company Number: CA-ROCHE-3166610

PATIENT
  Sex: Female

DRUGS (10)
  1. RITUXAN [Suspect]
     Active Substance: RITUXIMAB
     Indication: Rheumatoid arthritis
     Dosage: LAST RITUXAN INFUSION WAS RECEIVED ON 24/JAN/2022
     Route: 041
     Dates: start: 20181207, end: 20230403
  2. PERINDOPRIL [Concomitant]
     Active Substance: PERINDOPRIL
  3. DEXILANT [Concomitant]
     Active Substance: DEXLANSOPRAZOLE
  4. GABAPENTIN [Concomitant]
     Active Substance: GABAPENTIN
  5. LIPITOR [Concomitant]
     Active Substance: ATORVASTATIN CALCIUM
  6. MAGNESIUM [Concomitant]
     Active Substance: MAGNESIUM
  7. MIRAPEX [Concomitant]
     Active Substance: PRAMIPEXOLE DIHYDROCHLORIDE
  8. TRAZODONE [Concomitant]
     Active Substance: TRAZODONE HYDROCHLORIDE
  9. ERGOCALCIFEROL [Concomitant]
     Active Substance: ERGOCALCIFEROL
  10. PREDNISONE [Concomitant]
     Active Substance: PREDNISONE

REACTIONS (2)
  - Tooth infection [Not Recovered/Not Resolved]
  - Toothache [Not Recovered/Not Resolved]
